FAERS Safety Report 10432172 (Version 1)
Quarter: 2014Q3

REPORT INFORMATION
  Report Type: Spontaneous
  Country: US (occurrence: None)
  Receive Date: 20140904
  Receipt Date: 20140904
  Transmission Date: 20150326
  Serious: Yes (Other)
  Sender: FDA-Public Use
  Company Number: None

PATIENT
  Age: 40 Year
  Sex: Female
  Weight: 52.16 kg

DRUGS (6)
  1. OXYCODONE HYDROCHLORIDE. [Suspect]
     Active Substance: OXYCODONE HYDROCHLORIDE
     Indication: COMPLEX REGIONAL PAIN SYNDROME
     Dosage: 20-30MG ?EVERY 4 HOURS PRN ?TAKEN BY MOUTH??THERAPY?OVER 5 YEAR
     Route: 048
  2. OXYCODONE HYDROCHLORIDE. [Suspect]
     Active Substance: OXYCODONE HYDROCHLORIDE
     Indication: RHEUMATOID ARTHRITIS
     Dosage: 20-30MG ?EVERY 4 HOURS PRN ?TAKEN BY MOUTH??THERAPY?OVER 5 YEAR
     Route: 048
  3. OXYCODONE HYDROCHLORIDE. [Suspect]
     Active Substance: OXYCODONE HYDROCHLORIDE
     Indication: MULTIPLE SCLEROSIS
     Dosage: 20-30MG ?EVERY 4 HOURS PRN ?TAKEN BY MOUTH??THERAPY?OVER 5 YEAR
     Route: 048
  4. OXYCODONE HYDROCHLORIDE. [Suspect]
     Active Substance: OXYCODONE HYDROCHLORIDE
     Indication: POST LAMINECTOMY SYNDROME
     Dosage: 20-30MG ?EVERY 4 HOURS PRN ?TAKEN BY MOUTH??THERAPY?OVER 5 YEAR
     Route: 048
  5. OXYCODONE HYDROCHLORIDE. [Suspect]
     Active Substance: OXYCODONE HYDROCHLORIDE
     Indication: FIBROMYALGIA
     Dosage: 20-30MG ?EVERY 4 HOURS PRN ?TAKEN BY MOUTH??THERAPY?OVER 5 YEAR
     Route: 048
  6. OXYCODONE HYDROCHLORIDE. [Suspect]
     Active Substance: OXYCODONE HYDROCHLORIDE
     Indication: PAIN
     Dosage: 20-30MG ?EVERY 4 HOURS PRN ?TAKEN BY MOUTH??THERAPY?OVER 5 YEAR
     Route: 048

REACTIONS (3)
  - Product container seal issue [None]
  - Product container issue [None]
  - Product packaging issue [None]

NARRATIVE: CASE EVENT DATE: 20140827
